FAERS Safety Report 6424069-8 (Version None)
Quarter: 2009Q4

REPORT INFORMATION
  Report Type: 
  Country: None (occurrence: None)
  Receive Date: 20091029
  Receipt Date: 20091014
  Transmission Date: 20100525
  Serious: Yes (Death, Disabling)
  Sender: FDA-Public Use
  Company Number: 2009003165

PATIENT
  Age: 74 Year
  Sex: Female
  Weight: 46.6 kg

DRUGS (5)
  1. ERLOTINIB HYDROCHLORIDE [Suspect]
     Indication: LUNG ADENOCARCINOMA
     Dosage: (150 MG, QD), ORAL
     Route: 048
     Dates: start: 20081127, end: 20081129
  2. IRESSA [Suspect]
     Dosage: ORAL
     Route: 048
     Dates: start: 20081027, end: 20081126
  3. URSODIOL [Concomitant]
  4. ALFACALCIDOL (ALFACALCIDOL) [Concomitant]
  5. ZOMETA [Concomitant]

REACTIONS (7)
  - CARDIAC FAILURE [None]
  - HYPOXIA [None]
  - INTERSTITIAL LUNG DISEASE [None]
  - LUNG ADENOCARCINOMA [None]
  - MALIGNANT NEOPLASM PROGRESSION [None]
  - SPUTUM CULTURE POSITIVE [None]
  - STENOTROPHOMONAS INFECTION [None]
